FAERS Safety Report 21693309 (Version 1)
Quarter: 2022Q4

REPORT INFORMATION
  Report Type: Spontaneous
  Country: SK (occurrence: SK)
  Receive Date: 20221207
  Receipt Date: 20221207
  Transmission Date: 20230113
  Serious: Yes (Death, Hospitalization)
  Sender: FDA-Public Use
  Company Number: SK-MYLANLABS-2022M1136251

PATIENT
  Age: 66 Year
  Sex: Male

DRUGS (3)
  1. GEMCITABINE [Suspect]
     Active Substance: GEMCITABINE
     Indication: Transitional cell carcinoma
     Dosage: 200 MILLIGRAM/SQ. METER (200 MG/M2 ON DAY 1 AND 8)
     Route: 042
     Dates: start: 20170328, end: 20170718
  2. ATEZOLIZUMAB [Suspect]
     Active Substance: ATEZOLIZUMAB
     Indication: Transitional cell carcinoma
     Dosage: 1200 MILLIGRAM, Q3W
     Route: 042
     Dates: start: 20180117, end: 20180928
  3. CISPLATIN [Suspect]
     Active Substance: CISPLATIN
     Indication: Transitional cell carcinoma
     Dosage: 70 MILLIGRAM/SQ. METER (70 MG/M2 ON DAY1)
     Route: 042
     Dates: start: 20170328, end: 20170718

REACTIONS (1)
  - Drug ineffective [Fatal]
